FAERS Safety Report 5228075-0 (Version None)
Quarter: 2007Q1

REPORT INFORMATION
  Report Type: 
  Country: None (occurrence: None)
  Receive Date: 20061201
  Receipt Date: 20061011
  Transmission Date: 20070707
  Serious: No
  Sender: FDA-Public Use
  Company Number: US200610002181

PATIENT
  Age: 38 Year
  Sex: Male

DRUGS (2)
  1. CYMBALTA [Suspect]
     Indication: DEPRESSION
     Dosage: 60 MG, DAIL (1/D), ORAL
     Route: 048
     Dates: start: 20060101
  2. DEXEDRINE [Concomitant]

REACTIONS (1)
  - SEMENURIA [None]
